FAERS Safety Report 6407292-8 (Version None)
Quarter: 2009Q4

REPORT INFORMATION
  Report Type: 
  Country: None (occurrence: None)
  Receive Date: 20091020
  Receipt Date: 20091015
  Transmission Date: 20100525
  Serious: Yes (Death, Hospitalization)
  Sender: FDA-Public Use
  Company Number: A0812247A

PATIENT
  Age: 47 Year
  Sex: Female

DRUGS (2)
  1. TYKERB [Suspect]
     Indication: BREAST CANCER STAGE IV
     Dosage: 1250MG UNKNOWN
     Route: 048
     Dates: start: 20071001, end: 20071201
  2. XELODA [Concomitant]
     Dates: start: 20071001

REACTIONS (2)
  - NEOPLASM MALIGNANT [None]
  - PALMAR-PLANTAR ERYTHRODYSAESTHESIA SYNDROME [None]
